FAERS Safety Report 4478741-X (Version None)
Quarter: 2004Q4

REPORT INFORMATION
  Report Type: 
  Country: None (occurrence: None)
  Receive Date: 20040923
  Receipt Date: 20040625
  Transmission Date: 20050328
  Serious: No
  Sender: FDA-Public Use
  Company Number: USA040465989

PATIENT
  Age: 74 Year
  Sex: Female

DRUGS (2)
  1. FORTEO [Suspect]
     Indication: OSTEOPOROSIS
     Dates: start: 20040424
  2. CATAPRES [Concomitant]

REACTIONS (15)
  - ABDOMINAL PAIN UPPER [None]
  - BLOOD PRESSURE INCREASED [None]
  - BUTTOCK PAIN [None]
  - CONSTIPATION [None]
  - ERUCTATION [None]
  - FEELING ABNORMAL [None]
  - FLATULENCE [None]
  - HEADACHE [None]
  - HEART RATE INCREASED [None]
  - IMPAIRED HEALING [None]
  - MUSCLE CRAMP [None]
  - NAUSEA [None]
  - PAIN [None]
  - PAIN IN EXTREMITY [None]
  - STOMACH DISCOMFORT [None]
